FAERS Safety Report 7784070-9 (Version None)
Quarter: 2011Q3

REPORT INFORMATION
  Report Type: 
  Country: None (occurrence: None)
  Receive Date: 20110928
  Receipt Date: 20110620
  Transmission Date: 20111222
  Serious: No
  Sender: FDA-Public Use
  Company Number: US-BAYER-2011-054028

PATIENT

DRUGS (2)
  1. ALEVE (CAPLET) [Suspect]
     Indication: ABDOMINAL PAIN UPPER
  2. ALEVE (CAPLET) [Suspect]
     Indication: HEADACHE
     Route: 048

REACTIONS (2)
  - NO ADVERSE EVENT [None]
  - FEELING DRUNK [None]
